FAERS Safety Report 7934302-9 (Version None)
Quarter: 2011Q4

REPORT INFORMATION
  Report Type: 
  Country: None (occurrence: None)
  Receive Date: 20111122
  Receipt Date: 20111121
  Transmission Date: 20120403
  Serious: Yes (Other)
  Sender: FDA-Public Use
  Company Number: US-GLAXOSMITHKLINE-A0954081A

PATIENT
  Age: 62 Year
  Sex: Female

DRUGS (1)
  1. ALLI [Suspect]
     Indication: WEIGHT LOSS DIET
     Route: 048
     Dates: start: 20110101

REACTIONS (17)
  - MALAISE [None]
  - RECTAL DISCHARGE [None]
  - PANCREATITIS [None]
  - BACK PAIN [None]
  - LYMPHADENOPATHY [None]
  - FLATULENCE [None]
  - NAUSEA [None]
  - PANCREATIC ENZYMES INCREASED [None]
  - ABDOMINAL PAIN LOWER [None]
  - FATIGUE [None]
  - GALLBLADDER DISORDER [None]
  - HEPATOMEGALY [None]
  - ABDOMINAL DISTENSION [None]
  - PRURITUS [None]
  - FEELING ABNORMAL [None]
  - CONSTIPATION [None]
  - PANCREATIC ENLARGEMENT [None]
